FAERS Safety Report 4638137-4 (Version None)
Quarter: 2005Q2

REPORT INFORMATION
  Report Type: 
  Country: None (occurrence: None)
  Receive Date: 20050415
  Receipt Date: 20050330
  Transmission Date: 20051028
  Serious: Yes (Death, Other)
  Sender: FDA-Public Use
  Company Number: US_0503114862

PATIENT
  Age: 67 Year
  Sex: Male

DRUGS (1)
  1. HUMATROPE [Suspect]
     Indication: GROWTH HORMONE DEFICIENCY
     Dosage: 0.8 MG

REACTIONS (11)
  - ABDOMINAL PAIN [None]
  - CONSTIPATION [None]
  - DENTAL CARIES [None]
  - GINGIVITIS [None]
  - HAEMATEMESIS [None]
  - MOUTH HAEMORRHAGE [None]
  - MULTIPLE MYELOMA [None]
  - NON-CARDIAC CHEST PAIN [None]
  - PLEURITIC PAIN [None]
  - SPINAL COMPRESSION FRACTURE [None]
  - SYPHILIS [None]
